FAERS Safety Report 22393034 (Version 1)
Quarter: 2023Q2

REPORT INFORMATION
  Report Type: Spontaneous
  Country: ES (occurrence: ES)
  Receive Date: 20230601
  Receipt Date: 20230601
  Transmission Date: 20230721
  Serious: Yes (Other)
  Sender: FDA-Public Use
  Company Number: None

PATIENT
  Age: 60 Year
  Sex: Male

DRUGS (3)
  1. ATORVASTATIN [Suspect]
     Active Substance: ATORVASTATIN
     Indication: Dyslipidaemia
     Dosage: 30 MG 0-0-1 13/11/2020 --CURRENTLY (FROM 20MG FROM 16/04/2014)   , ATORVASTATINA (7400A)
     Dates: start: 20160416, end: 20230125
  2. ENALAPRIL [Suspect]
     Active Substance: ENALAPRIL
     Indication: Hypertension
     Dosage: 20 MG 1-0-0 21/02/2017--25/01/2023 (FROM 5MG FROM 28/06/2012, FROM 10MG FROM 16/04/2014)  , 28 TABL
     Dates: start: 20140416, end: 20230125
  3. JARDIANCE [Suspect]
     Active Substance: EMPAGLIFLOZIN
     Indication: Diabetes mellitus
     Dosage: 25 MILLIGRAM DAILY; 25MG 1-0-0
     Dates: start: 20200225

REACTIONS (1)
  - Pancreatitis chronic [Unknown]

NARRATIVE: CASE EVENT DATE: 20221108
